FAERS Safety Report 5197795-9 (Version None)
Quarter: 2006Q4

REPORT INFORMATION
  Report Type: 
  Country: None (occurrence: None)
  Receive Date: 20061228
  Receipt Date: 20061213
  Transmission Date: 20070319
  Serious: Yes (Hospitalization)
  Sender: FDA-Public Use
  Company Number: 2006RR-04928

PATIENT
  Age: 44 Year
  Sex: Female

DRUGS (6)
  1. GABAPENTIN [Suspect]
     Indication: INTENTIONAL OVERDOSE
  2. NEFAZODONE HCL [Suspect]
     Indication: INTENTIONAL OVERDOSE
  3. DIGOXIN [Concomitant]
  4. CARVEDILOL [Concomitant]
  5. RABEPRAZOLE SODIUM [Concomitant]
  6. QUINAPRIL HYDROCHLORIDE (QUINAPRIL) [Concomitant]

REACTIONS (7)
  - DEPRESSION [None]
  - DRUG INTERACTION [None]
  - DRUG TOXICITY [None]
  - ELECTROCARDIOGRAM CHANGE [None]
  - INTENTIONAL OVERDOSE [None]
  - LETHARGY [None]
  - TACHYCARDIA [None]
